FAERS Safety Report 8165690-9 (Version None)
Quarter: 2012Q1

REPORT INFORMATION
  Report Type: 
  Country: None (occurrence: None)
  Receive Date: 20120227
  Receipt Date: 20120217
  Transmission Date: 20120608
  Serious: Yes (Hospitalization)
  Sender: FDA-Public Use
  Company Number: US-BAYER-2012-017043

PATIENT
  Age: 43 Year
  Sex: Female

DRUGS (10)
  1. ZESTORETIC [Concomitant]
     Dosage: UNK
     Route: 048
     Dates: start: 20100908, end: 20101006
  2. CYANOCOBALAMIN [Concomitant]
     Dosage: 1000 ?G, UNK
     Dates: start: 20100806, end: 20101006
  3. VICOPROFEN [Concomitant]
     Dosage: UNK
     Route: 048
     Dates: start: 20101014
  4. SULFAMETHOXAZOLE AND TRIMETHOPRIM DOUBLE STRENGTH [Concomitant]
     Dosage: UNK
     Route: 048
     Dates: start: 20100709
  5. AZITROMYCINE MERCK [Concomitant]
     Dosage: 250 MG, UNK
     Route: 048
     Dates: start: 20100810, end: 20101013
  6. IMITREX [Concomitant]
     Dosage: 100 MG, UNK
     Route: 048
     Dates: start: 20101014
  7. PANTOPRAZOLE [Concomitant]
     Dosage: DAILY DOSE 40 MG
     Route: 048
     Dates: start: 20100805
  8. BENTYL [Concomitant]
     Indication: MUSCLE SPASMS
     Dosage: 20 MG, UNK
     Route: 048
     Dates: start: 20101014
  9. ZANAFLEX [Concomitant]
     Dosage: 4 MG, UNK
     Route: 048
     Dates: start: 20101014
  10. YASMIN [Suspect]
     Dosage: UNK
     Route: 048

REACTIONS (1)
  - PULMONARY EMBOLISM [None]
